FAERS Safety Report 19981566 (Version 2)
Quarter: 2021Q4

REPORT INFORMATION
  Report Type: Other
  Country: BD (occurrence: BD)
  Receive Date: 20211022
  Receipt Date: 20211101
  Transmission Date: 20220303
  Serious: Yes (Death, Hospitalization)
  Sender: FDA-Public Use
  Company Number: BD-002147023-NVSC2021BD238871

PATIENT
  Age: 41 Year
  Sex: Female
  Weight: 68 kg

DRUGS (2)
  1. XOLAIR [Suspect]
     Active Substance: OMALIZUMAB
     Indication: Asthma
     Route: 058
     Dates: start: 202103, end: 202109
  2. XOLAIR [Suspect]
     Active Substance: OMALIZUMAB
     Indication: COVID-19

REACTIONS (2)
  - COVID-19 [Fatal]
  - Asthma [Fatal]

NARRATIVE: CASE EVENT DATE: 20211007
